FAERS Safety Report 8621020-7 (Version None)
Quarter: 2012Q3

REPORT INFORMATION
  Report Type: 
  Country: None (occurrence: None)
  Receive Date: 20120824
  Receipt Date: 20120717
  Transmission Date: 20120928
  Serious: No
  Sender: FDA-Public Use
  Company Number: CA-009507513-1207CAN011962

PATIENT

DRUGS (7)
  1. SAPHRIS [Suspect]
     Indication: BIPOLAR DISORDER
     Dosage: 5 MG, BID
     Route: 060
     Dates: start: 20120601, end: 20120601
  2. SYNTHROID [Concomitant]
     Indication: HYPOTHYROIDISM
     Dosage: 0.025 MG, QD
     Route: 048
  3. WELLBUTRIN [Concomitant]
     Dosage: 300 MG, QD
     Route: 048
  4. LITHIUM CARBONATE [Concomitant]
     Dosage: 900 MG, QD
     Route: 048
  5. ABILIFY [Concomitant]
     Dosage: 1 MG, QD
     Route: 048
     Dates: start: 20110601, end: 20120101
  6. SAPHRIS [Suspect]
     Indication: AFFECTIVE DISORDER
  7. CLONAZEPAM [Concomitant]
     Dosage: UNK UNK, TID

REACTIONS (5)
  - SWOLLEN TONGUE [None]
  - SEDATION [None]
  - NAUSEA [None]
  - OEDEMA PERIPHERAL [None]
  - DIZZINESS [None]
